FAERS Safety Report 6672356-0 (Version None)
Quarter: 2010Q2

REPORT INFORMATION
  Report Type: 
  Country: None (occurrence: None)
  Receive Date: 20100408
  Receipt Date: 20100325
  Transmission Date: 20101027
  Serious: No
  Sender: FDA-Public Use
  Company Number: US-SOLVAY-00210001862

PATIENT
  Age: 54 Year
  Sex: Female
  Weight: 109.09 kg

DRUGS (2)
  1. ANDROGEL [Suspect]
     Indication: ACCIDENTAL EXPOSURE
     Dosage: DAILY DOSE:  UNKNOWN, VIA PUMP
     Route: 062
     Dates: start: 20040101
  2. ANDROGEL [Suspect]
     Dosage: DAILY DOSE: 35 GRAM(S), AS USED:16 PUMPS MORNING AND 12 PUMPS AFTERNOON, FREQ: TWICE A DAY, VIA PUMP
     Route: 062

REACTIONS (2)
  - BLOOD TESTOSTERONE INCREASED [None]
  - MENORRHAGIA [None]
